FAERS Safety Report 5686923-4 (Version None)
Quarter: 2008Q1

REPORT INFORMATION
  Report Type: 
  Country: None (occurrence: None)
  Receive Date: 20080328
  Receipt Date: 20070604
  Transmission Date: 20080703
  Serious: No
  Sender: FDA-Public Use
  Company Number: US-BAYER-US-2007-020958

PATIENT
  Age: 28 Year
  Sex: Female
  Weight: 94 kg

DRUGS (3)
  1. MIRENA [Suspect]
     Indication: CONTRACEPTION
     Route: 015
     Dates: start: 20061101, end: 20061201
  2. MIRENA [Suspect]
     Route: 015
     Dates: start: 20070206, end: 20070306
  3. MIRENA [Suspect]
     Route: 015
     Dates: start: 20070411, end: 20070514

REACTIONS (2)
  - INTRA-UTERINE CONTRACEPTIVE DEVICE EXPELLED [None]
  - IUCD COMPLICATION [None]
